FAERS Safety Report 7040517-7 (Version None)
Quarter: 2010Q4

REPORT INFORMATION
  Report Type: 
  Country: None (occurrence: None)
  Receive Date: 20101008
  Receipt Date: 20101008
  Transmission Date: 20110411
  Serious: Yes (Hospitalization)
  Sender: FDA-Public Use
  Company Number: None

PATIENT
  Age: 64 Year
  Sex: Male
  Weight: 90 kg

DRUGS (1)
  1. CYMBALTA [Suspect]
     Indication: PAIN MANAGEMENT
     Dosage: 30MG 1 PER DAY ORAL
     Route: 048

REACTIONS (1)
  - BLOOD PRESSURE INCREASED [None]
